FAERS Safety Report 13925193 (Version 5)
Quarter: 2017Q4

REPORT INFORMATION
  Report Type: Report from Study
  Country: US (occurrence: US)
  Receive Date: 20170831
  Receipt Date: 20171114
  Transmission Date: 20180320
  Serious: Yes (Hospitalization)
  Sender: FDA-Public Use
  Company Number: US-GILEAD-2017-0291160

PATIENT
  Age: 65 Year
  Sex: Female

DRUGS (7)
  1. REMODULIN [Suspect]
     Active Substance: TREPROSTINIL
     Indication: PULMONARY ARTERIAL HYPERTENSION
     Dosage: 21.5 NG, Q1MINUTE
     Route: 065
     Dates: start: 20170131
  2. REMODULIN [Suspect]
     Active Substance: TREPROSTINIL
     Dosage: 29.5 UG, Q1SECOND
     Route: 065
  3. ADCIRCA [Concomitant]
     Active Substance: TADALAFIL
  4. AMBRISENTAN [Suspect]
     Active Substance: AMBRISENTAN
     Indication: PULMONARY HYPERTENSION
     Dosage: 10 MG, QD
     Route: 065
     Dates: start: 20140819, end: 20170818
  5. REMODULIN [Suspect]
     Active Substance: TREPROSTINIL
     Dosage: 2.5 MG, Q3DAYS
     Route: 065
  6. ADCIRCA [Concomitant]
     Active Substance: TADALAFIL
     Dosage: UNK
  7. ADCIRCA [Concomitant]
     Active Substance: TADALAFIL

REACTIONS (4)
  - Intentional product use issue [Not Recovered/Not Resolved]
  - Fluid retention [Unknown]
  - General physical health deterioration [Unknown]
  - Blood pressure decreased [Unknown]
